FAERS Safety Report 7744844-7 (Version None)
Quarter: 2011Q3

REPORT INFORMATION
  Report Type: 
  Country: None (occurrence: None)
  Receive Date: 20110912
  Receipt Date: 20110831
  Transmission Date: 20111222
  Serious: Yes (Hospitalization)
  Sender: FDA-Public Use
  Company Number: AR-GENENTECH-324013

PATIENT
  Sex: Male

DRUGS (2)
  1. ORAL ANTIDIABETIC DRUG NOS [Concomitant]
     Indication: DIABETES MELLITUS
  2. LUCENTIS [Suspect]
     Indication: CORNEAL DISORDER
     Dosage: 1 DF, 1/MONTH
     Route: 031

REACTIONS (2)
  - PULMONARY OEDEMA [None]
  - BLOOD GLUCOSE INCREASED [None]
